FAERS Safety Report 9300570 (Version 1)
Quarter: 2013Q2

REPORT INFORMATION
  Report Type: Spontaneous
  Country: TR (occurrence: TR)
  Receive Date: 20130521
  Receipt Date: 20130521
  Transmission Date: 20140414
  Serious: Yes (Disabling, Other)
  Sender: FDA-Public Use
  Company Number: PHHY2013TR049895

PATIENT
  Sex: Female

DRUGS (1)
  1. VOLTAREN [Suspect]
     Indication: PAIN
     Dosage: UNK UKN, UNK
     Route: 030
     Dates: start: 20080831

REACTIONS (21)
  - Sciatic nerve neuropathy [Unknown]
  - Paralysis [Unknown]
  - Peripheral coldness [Unknown]
  - Hypoaesthesia [Unknown]
  - Hyporeflexia [Unknown]
  - Neuritis [Unknown]
  - Nerve injury [Unknown]
  - Muscular dystrophy [Unknown]
  - Dysstasia [Unknown]
  - Gait disturbance [Unknown]
  - Neuralgia [Unknown]
  - Pain [Unknown]
  - Hypokinesia [Unknown]
  - Balance disorder [Unknown]
  - Areflexia [Unknown]
  - Oedema [Unknown]
  - Ovarian cyst [Unknown]
  - Wound [Unknown]
  - Depression [Unknown]
  - Insomnia [Unknown]
  - Injection site inflammation [Unknown]
